FAERS Safety Report 24023732 (Version 1)
Quarter: 2024Q2

REPORT INFORMATION
  Report Type: Spontaneous
  Country: DE (occurrence: DE)
  Receive Date: 20240627
  Receipt Date: 20240627
  Transmission Date: 20240716
  Serious: Yes (Other)
  Sender: FDA-Public Use
  Company Number: DE-009507513-2406DEU008906

PATIENT
  Sex: Female

DRUGS (1)
  1. KEYTRUDA [Suspect]
     Active Substance: PEMBROLIZUMAB
     Indication: Triple negative breast cancer
     Dosage: 200 MILLIGRAM, Q3W
     Dates: end: 202312

REACTIONS (2)
  - Immune-mediated lung disease [Unknown]
  - Pulmonary fibrosis [Unknown]

NARRATIVE: CASE EVENT DATE: 20240201
